FAERS Safety Report 8448004-6 (Version None)
Quarter: 2012Q2

REPORT INFORMATION
  Report Type: 
  Country: None (occurrence: None)
  Receive Date: 20120619
  Receipt Date: 20120612
  Transmission Date: 20120825
  Serious: Yes (Hospitalization, Other)
  Sender: FDA-Public Use
  Company Number: JP-PFIZER INC-2012134061

PATIENT
  Age: 74 Year
  Sex: Male

DRUGS (15)
  1. ASPIRIN [Concomitant]
  2. CELEBREX [Concomitant]
  3. BISOPROLOL FUMARATE [Concomitant]
  4. LENDORMIN [Concomitant]
  5. DEPAS [Concomitant]
  6. OXYBUTYNIN HYDROCHLORIDE [Concomitant]
  7. LOXOPROFEN SODIUM [Concomitant]
  8. MUCOSTA [Concomitant]
  9. PROTECADIN [Concomitant]
  10. GASLON [Concomitant]
  11. ZOLPIDEM [Concomitant]
  12. LYRICA [Suspect]
     Indication: POLLAKIURIA
     Dosage: 150 MG, 2X/DAY
     Route: 048
  13. IRRIBOW [Concomitant]
  14. VOLTAREN [Concomitant]
  15. OSTELUC [Concomitant]

REACTIONS (1)
  - ALTERED STATE OF CONSCIOUSNESS [None]
